FAERS Safety Report 15060679 (Version 2)
Quarter: 2019Q1

REPORT INFORMATION
  Report Type: Report from Study
  Country: DE (occurrence: DE)
  Receive Date: 20180625
  Receipt Date: 20190220
  Transmission Date: 20190417
  Serious: Yes (Death, Hospitalization)
  Sender: FDA-Public Use
  Company Number: DE-PFIZER INC-2018251918

PATIENT
  Age: 86 Year
  Sex: Female
  Weight: 67 kg

DRUGS (17)
  1. OXALIPLATIN. [Suspect]
     Active Substance: OXALIPLATIN
     Dosage: 4000 MG, OVER 48 HOURS
     Route: 042
     Dates: start: 20130902, end: 20140122
  2. TARGIN [Concomitant]
     Active Substance: NALOXONE HYDROCHLORIDE\OXYCODONE HYDROCHLORIDE
     Indication: TUMOUR PAIN
     Dosage: 1 DF, 2X/DAY 5/2.5 MG, 1-0-1
     Route: 048
     Dates: start: 20140212, end: 20140428
  3. PANTOZOL [Concomitant]
     Active Substance: PANTOPRAZOLE SODIUM
     Indication: PROPHYLAXIS
     Dosage: 40 MG, 2X/DAY 1-0-1
     Route: 048
     Dates: start: 20130726, end: 20140428
  4. AVASTIN [Suspect]
     Active Substance: BEVACIZUMAB
     Indication: COLORECTAL CANCER
     Dosage: 350 MG, UNK
     Route: 042
     Dates: start: 20130902, end: 20140121
  5. AVASTIN [Suspect]
     Active Substance: BEVACIZUMAB
     Dosage: 300 MG, UNK
     Route: 042
     Dates: start: 20140331, end: 20140331
  6. NOVALGIN (METAMIZOLE SODIUM) [Concomitant]
     Active Substance: METAMIZOLE SODIUM
     Indication: TUMOUR PAIN
     Dosage: 20 GTT, 3X/DAY 1-1-1 (REPORTED INGREDIENT DIPYRONE SODIUM)
     Route: 048
     Dates: start: 20140110, end: 20140428
  7. 5-FLUOROURACIL [Suspect]
     Active Substance: FLUOROURACIL
     Dosage: 4000 MG, CYCLIC (OVER 48 HOURS)
     Route: 041
     Dates: start: 20130902, end: 20140122
  8. OXALIPLATIN. [Suspect]
     Active Substance: OXALIPLATIN
     Dosage: DAILY DOSE: 130 MG MILLGRAM(S) EVERY 15 DAYS
     Route: 042
     Dates: start: 20140213, end: 20140331
  9. OXALIPLATIN. [Suspect]
     Active Substance: OXALIPLATIN
     Dosage: 600 MG, UNK
     Route: 042
     Dates: start: 20140213, end: 20140331
  10. 5-FLUOROURACIL [Suspect]
     Active Substance: FLUOROURACIL
     Indication: COLORECTAL CANCER
     Dosage: 3500 MG, CYCLIC (DAILY EVERY 15 DAYS),
     Route: 041
     Dates: start: 20140213, end: 20140401
  11. 5-FLUOROURACIL [Suspect]
     Active Substance: FLUOROURACIL
     Dosage: 700 MG, CYCLIC (DAILY EVERY 15 DAYS)
     Route: 040
     Dates: start: 20130902, end: 20140121
  12. LYRICA [Concomitant]
     Active Substance: PREGABALIN
     Indication: POLYNEUROPATHY
     Dosage: 75 MG, 2X/DAY ^1-0-1^
     Route: 048
     Dates: start: 20140110, end: 20140428
  13. 5-FLUOROURACIL [Suspect]
     Active Substance: FLUOROURACIL
     Dosage: 600 MG, CYCLIC (DAILY EVERY 15 DAYS)
     Route: 040
     Dates: start: 20140213, end: 20140331
  14. CALCIUM FOLINATE [Suspect]
     Active Substance: LEUCOVORIN CALCIUM
     Indication: COLORECTAL CANCER
     Dosage: 650 MG, UNK
     Route: 042
     Dates: start: 20140213, end: 20140331
  15. CALCIUM FOLINATE [Suspect]
     Active Substance: LEUCOVORIN CALCIUM
     Dosage: 700 MG, UNK
     Route: 042
     Dates: start: 20130902, end: 20140121
  16. OXALIPLATIN. [Suspect]
     Active Substance: OXALIPLATIN
     Indication: COLORECTAL CANCER
     Dosage: DAILY DOSE: 150 MG MILLGRAM(S) EVERY 15 DAYS
     Route: 042
     Dates: start: 20130902, end: 20140121
  17. PALLADON [Concomitant]
     Active Substance: HYDROMORPHONE
     Indication: TUMOUR PAIN
     Dosage: 4 MG, 2X/DAY 1-0-1
     Route: 048
     Dates: start: 20140110, end: 20140428

REACTIONS (9)
  - Gastric ulcer [Recovered/Resolved]
  - Duodenal ulcer [Recovered/Resolved]
  - Dehydration [Recovered/Resolved]
  - Malignant neoplasm progression [Unknown]
  - Vomiting [Recovered/Resolved]
  - Cerebrovascular accident [Fatal]
  - Hemiparesis [Unknown]
  - Gastrooesophageal reflux disease [Recovered/Resolved]
  - Nausea [Recovered/Resolved]

NARRATIVE: CASE EVENT DATE: 20140131
